FAERS Safety Report 10914324 (Version 5)
Quarter: 2015Q3

REPORT INFORMATION
  Report Type: Spontaneous
  Country: US (occurrence: US)
  Receive Date: 20150313
  Receipt Date: 20150914
  Transmission Date: 20151125
  Serious: Yes (Other)
  Sender: FDA-Public Use
  Company Number: US-PFIZER INC-2015082959

PATIENT
  Age: 36 Year
  Sex: Female

DRUGS (8)
  1. LOXAPINE. [Suspect]
     Active Substance: LOXAPINE
     Dosage: UNK
  2. TRAZODONE HYDROCHLORIDE. [Suspect]
     Active Substance: TRAZODONE HYDROCHLORIDE
     Indication: INSOMNIA
  3. GEODON [Suspect]
     Active Substance: ZIPRASIDONE HYDROCHLORIDE\ZIPRASIDONE MESYLATE
     Indication: DELUSIONAL PERCEPTION
     Dosage: 80 MG, 2X/DAY (MORNING AND NIGHT)
     Dates: start: 201412
  4. TRAZODONE HYDROCHLORIDE. [Suspect]
     Active Substance: TRAZODONE HYDROCHLORIDE
     Indication: PSYCHOTIC DISORDER
     Dosage: UNK
     Dates: start: 201406
  5. PROLIXIN [Suspect]
     Active Substance: FLUPHENAZINE HYDROCHLORIDE
     Dosage: UNK
  6. TEGRETOL [Suspect]
     Active Substance: CARBAMAZEPINE
     Indication: PARTIAL SEIZURES
     Dosage: UNK
     Dates: start: 201406
  7. COGENTIN [Suspect]
     Active Substance: BENZTROPINE MESYLATE
     Dosage: 2 MG, 2X/DAY
  8. COGENTIN [Suspect]
     Active Substance: BENZTROPINE MESYLATE
     Indication: ADVERSE DRUG REACTION
     Dosage: 1 MG, UNK
     Dates: start: 201411

REACTIONS (20)
  - Tremor [Not Recovered/Not Resolved]
  - Eye movement disorder [Recovered/Resolved]
  - Muscle tightness [Not Recovered/Not Resolved]
  - Vision blurred [Not Recovered/Not Resolved]
  - Extrapyramidal disorder [Recovered/Resolved]
  - Asthenopia [Not Recovered/Not Resolved]
  - Throat tightness [Unknown]
  - Partial seizures [Recovered/Resolved]
  - Blepharospasm [Recovered/Resolved]
  - Anxiety [Not Recovered/Not Resolved]
  - Mental disorder [Recovered/Resolved]
  - Drug intolerance [Recovered/Resolved]
  - Syncope [Unknown]
  - Insomnia [Recovered/Resolved]
  - Visual impairment [Not Recovered/Not Resolved]
  - Nervousness [Unknown]
  - Drug hypersensitivity [Unknown]
  - Eye disorder [Not Recovered/Not Resolved]
  - Seizure [Recovered/Resolved]
  - Psychogenic seizure [Unknown]

NARRATIVE: CASE EVENT DATE: 201412
